FAERS Safety Report 4282901-0 (Version None)
Quarter: 2004Q1

REPORT INFORMATION
  Report Type: 
  Country: None (occurrence: None)
  Receive Date: 20040130
  Receipt Date: 20031013
  Transmission Date: 20041129
  Serious: No
  Sender: FDA-Public Use
  Company Number: US-BRISTOL-MYERS SQUIBB COMPANY-12409090

PATIENT
  Age: 39 Year
  Sex: Female
  Weight: 73 kg

DRUGS (1)
  1. SERZONE [Suspect]
     Indication: ANXIETY
     Route: 048
     Dates: start: 19970101, end: 20030301

REACTIONS (1)
  - TOOTH DISORDER [None]
